FAERS Safety Report 18672067 (Version 1)
Quarter: 2020Q4

REPORT INFORMATION
  Report Type: Spontaneous
  Country: UA (occurrence: UA)
  Receive Date: 20201229
  Receipt Date: 20201229
  Transmission Date: 20210114
  Serious: Yes (Other)
  Sender: FDA-Public Use
  Company Number: UA-ROCHE-2710415

PATIENT
  Sex: Female

DRUGS (2)
  1. ALECENSA [Suspect]
     Active Substance: ALECTINIB HYDROCHLORIDE
     Dosage: 2 TABLETS PER DAY
     Route: 048
  2. ALECENSA [Suspect]
     Active Substance: ALECTINIB HYDROCHLORIDE
     Indication: LUNG ADENOCARCINOMA
     Dosage: 8 TABLETS PER DAY
     Route: 048
     Dates: start: 20200801

REACTIONS (2)
  - Myalgia [Unknown]
  - Arthralgia [Not Recovered/Not Resolved]
